FAERS Safety Report 8001423-4 (Version None)
Quarter: 2011Q4

REPORT INFORMATION
  Report Type: 
  Country: None (occurrence: None)
  Receive Date: 20111222
  Receipt Date: 20111215
  Transmission Date: 20120403
  Serious: Yes (Other)
  Sender: FDA-Public Use
  Company Number: JP-JNJFOC-20111207714

PATIENT
  Age: 8 Decade
  Sex: Female

DRUGS (2)
  1. GALANTAMINE HYDROBROMIDE [Suspect]
     Indication: DEMENTIA ALZHEIMER'S TYPE
     Route: 048
     Dates: start: 20111208, end: 20111215
  2. GALANTAMINE HYDROBROMIDE [Suspect]
     Route: 048
     Dates: end: 20111207

REACTIONS (2)
  - CARDIAC FAILURE [None]
  - TACHYCARDIA [None]
